APPROVED DRUG PRODUCT: FUROSEMIDE
Active Ingredient: FUROSEMIDE
Strength: 20MG
Dosage Form/Route: TABLET;ORAL
Application: A076796 | Product #001 | TE Code: AB
Applicant: PRINSTON PHARMACEUTICAL INC
Approved: Mar 26, 2004 | RLD: No | RS: No | Type: RX